FAERS Safety Report 25395345 (Version 2)
Quarter: 2025Q2

REPORT INFORMATION
  Report Type: Spontaneous
  Country: US (occurrence: US)
  Receive Date: 20250604
  Receipt Date: 20250613
  Transmission Date: 20250717
  Serious: Yes (Other)
  Sender: TEVA
  Company Number: US-TEVA-VS-3335728

PATIENT
  Age: 60 Year
  Sex: Male

DRUGS (3)
  1. POSACONAZOLE [Interacting]
     Active Substance: POSACONAZOLE
     Indication: Antifungal prophylaxis
     Route: 065
  2. PACRITINIB [Interacting]
     Active Substance: PACRITINIB
     Indication: Myelofibrosis
     Route: 065
  3. PACRITINIB [Interacting]
     Active Substance: PACRITINIB
     Indication: Myelofibrosis
     Dosage: REDUCED
     Route: 065

REACTIONS (5)
  - Neutropenia [Unknown]
  - Oedema peripheral [Not Recovered/Not Resolved]
  - Dyspnoea [Not Recovered/Not Resolved]
  - Drug interaction [Unknown]
  - Cough [Not Recovered/Not Resolved]
